FAERS Safety Report 8057143-3 (Version None)
Quarter: 2012Q1

REPORT INFORMATION
  Report Type: 
  Country: None (occurrence: None)
  Receive Date: 20120119
  Receipt Date: 20120118
  Transmission Date: 20120608
  Serious: Yes (Life-Threatening)
  Sender: FDA-Public Use
  Company Number: PHHY2012IT000809

PATIENT
  Sex: Male

DRUGS (1)
  1. AMOXICILLIN AND CLAVULANATE POTASSIUM [Suspect]
     Indication: TOOTHACHE
     Dosage: 1 DF, DAILY
     Route: 048
     Dates: start: 20111213, end: 20111213

REACTIONS (5)
  - CHEST PAIN [None]
  - NAUSEA [None]
  - ACUTE MYOCARDIAL INFARCTION [None]
  - PRURITUS [None]
  - ANAPHYLACTIC REACTION [None]
